FAERS Safety Report 5111653-7 (Version None)
Quarter: 2006Q3

REPORT INFORMATION
  Report Type: 
  Country: None (occurrence: None)
  Receive Date: 20060731
  Receipt Date: 20060630
  Transmission Date: 20061208
  Serious: No
  Sender: FDA-Public Use
  Company Number: 2006PV016798

PATIENT
  Age: 51 Year
  Sex: Female
  Weight: 86.637 kg

DRUGS (5)
  1. BYETTA [Suspect]
     Indication: DIABETES MELLITUS NON-INSULIN-DEPENDENT
     Dosage: 5 MCG;BID;SC
     Route: 058
     Dates: start: 20060626
  2. GLUCOPHAGE [Concomitant]
  3. EFFEXOR [Concomitant]
  4. VIVAL HOT PATCH [Concomitant]
  5. LIPITOR [Concomitant]

REACTIONS (10)
  - ABDOMINAL DISCOMFORT [None]
  - CHEST PAIN [None]
  - DECREASED APPETITE [None]
  - FEELING ABNORMAL [None]
  - FEELING HOT [None]
  - FEELING JITTERY [None]
  - HEADACHE [None]
  - HEART RATE INCREASED [None]
  - NAUSEA [None]
  - VOMITING [None]
